FAERS Safety Report 6347727-2 (Version None)
Quarter: 2009Q3

REPORT INFORMATION
  Report Type: 
  Country: None (occurrence: None)
  Receive Date: 20090910
  Receipt Date: 20090831
  Transmission Date: 20100115
  Serious: Yes (Life-Threatening, Hospitalization, Disabling)
  Sender: FDA-Public Use
  Company Number: JP-PFIZER INC-2009263638

PATIENT
  Age: 79 Year

DRUGS (7)
  1. SUNITINIB MALATE [Suspect]
     Indication: RENAL CELL CARCINOMA
     Dosage: 50 MG, 1X/DAY
     Route: 048
     Dates: start: 20090623
  2. CALSLOT [Concomitant]
     Dosage: UNK
     Route: 048
  3. BLOPRESS [Concomitant]
     Dosage: UNK
     Route: 048
     Dates: start: 20090624
  4. GASMOTIN [Concomitant]
     Dosage: UNK
     Route: 048
     Dates: start: 20090702
  5. ATELEC [Concomitant]
     Dosage: UNK
     Route: 048
     Dates: start: 20090703
  6. ADONA [Concomitant]
     Dosage: UNK
     Route: 048
  7. RESLIN [Concomitant]
     Dosage: UNK
     Route: 048

REACTIONS (6)
  - CEREBRAL INFARCTION [None]
  - DECREASED APPETITE [None]
  - HYPOTHYROIDISM [None]
  - NAUSEA [None]
  - PLATELET COUNT DECREASED [None]
  - WHITE BLOOD CELL COUNT DECREASED [None]
